FAERS Safety Report 13615826 (Version 1)
Quarter: 2017Q2

REPORT INFORMATION
  Report Type: Spontaneous
  Country: US (occurrence: US)
  Receive Date: 20170605
  Receipt Date: 20170605
  Transmission Date: 20170830
  Serious: Yes (Hospitalization)
  Sender: FDA-Public Use
  Company Number: None

PATIENT
  Age: 61 Year
  Sex: Male
  Weight: 75.9 kg

DRUGS (1)
  1. FLUOROURACIL. [Suspect]
     Active Substance: FLUOROURACIL
     Indication: NEOPLASM MALIGNANT
     Route: 042
     Dates: start: 20131029, end: 20131030

REACTIONS (7)
  - Blood creatinine increased [None]
  - Blood potassium decreased [None]
  - Diarrhoea [None]
  - Dehydration [None]
  - Blood sodium decreased [None]
  - Hypophagia [None]
  - Blood urea increased [None]

NARRATIVE: CASE EVENT DATE: 20131108
